FAERS Safety Report 7689882-8 (Version None)
Quarter: 2011Q3

REPORT INFORMATION
  Report Type: 
  Country: None (occurrence: None)
  Receive Date: 20110818
  Receipt Date: 20110808
  Transmission Date: 20111222
  Serious: No
  Sender: FDA-Public Use
  Company Number: US-BIOGENIDEC-2010BI008151

PATIENT
  Sex: Female

DRUGS (2)
  1. TYSABRI [Suspect]
     Indication: MULTIPLE SCLEROSIS
     Route: 042
     Dates: start: 20081201
  2. AVONEX [Concomitant]
     Indication: MULTIPLE SCLEROSIS
     Route: 030
     Dates: start: 20030610

REACTIONS (19)
  - CONFUSIONAL STATE [None]
  - GAIT DISTURBANCE [None]
  - ANAEMIA [None]
  - CONSTIPATION [None]
  - PAIN [None]
  - FALL [None]
  - MUSCULOSKELETAL PAIN [None]
  - FEAR [None]
  - ABDOMINAL DISCOMFORT [None]
  - DIZZINESS [None]
  - DRUG EFFECT DECREASED [None]
  - VISUAL IMPAIRMENT [None]
  - ALOPECIA [None]
  - ARTHROPATHY [None]
  - MADAROSIS [None]
  - JOINT RANGE OF MOTION DECREASED [None]
  - DISTURBANCE IN ATTENTION [None]
  - ASTHENIA [None]
  - VISION BLURRED [None]
